FAERS Safety Report 9195506 (Version 2)
Quarter: 2013Q2

REPORT INFORMATION
  Report Type: Report from Study
  Country: IT (occurrence: IT)
  Receive Date: 20130328
  Receipt Date: 20130426
  Transmission Date: 20140414
  Serious: Yes (Life-Threatening, Hospitalization, Other)
  Sender: FDA-Public Use
  Company Number: IT-BIOGENIDEC-2013BI027851

PATIENT
  Age: 31 Year
  Sex: Female

DRUGS (4)
  1. TYSABRI [Suspect]
     Indication: RELAPSING-REMITTING MULTIPLE SCLEROSIS
     Route: 042
     Dates: start: 20091014, end: 200912
  2. TYSABRI [Suspect]
     Indication: RELAPSING-REMITTING MULTIPLE SCLEROSIS
     Route: 042
     Dates: end: 20121013
  3. ZANTAC [Concomitant]
     Indication: PROPHYLAXIS
     Dates: start: 20121214
  4. EUTIROX [Concomitant]
     Indication: HYPOTHYROIDISM
     Dates: start: 20121214

REACTIONS (1)
  - Acute promyelocytic leukaemia [Not Recovered/Not Resolved]
